FAERS Safety Report 6296198-3 (Version None)
Quarter: 2009Q3

REPORT INFORMATION
  Report Type: 
  Country: None (occurrence: None)
  Receive Date: 20090730
  Receipt Date: 20090730
  Transmission Date: 20100115
  Serious: Yes (Other)
  Sender: FDA-Public Use
  Company Number: None

PATIENT
  Age: 46 Year
  Sex: Female

DRUGS (7)
  1. OTRIVIN [Suspect]
     Indication: NASAL CONGESTION
     Dosage: 2 PACKAGES PER WEEK, NASAL
     Route: 045
  2. ZOLPIDEM [Concomitant]
  3. DICLO-DIVIDO (DICLOFENAC SODIUM) [Concomitant]
  4. TRIAM ^LICHTENSTEIN^ (TRIAMCINOLONE ACETONIDE) [Concomitant]
  5. ALLERGOSPASMIN (CROMOGLICATE SODIUM, REPROTEROL HYDROCHLORIDE) [Concomitant]
  6. LISI HENNIG [Concomitant]
  7. IBUBETA (IBUPROFEN) [Concomitant]

REACTIONS (2)
  - DRUG ABUSE [None]
  - NASAL CONGESTION [None]
